FAERS Safety Report 8829923 (Version 1)
Quarter: 2012Q4

REPORT INFORMATION
  Report Type: 
  Country: US (occurrence: US)
  Receive Date: 20121008
  Receipt Date: 20121008
  Transmission Date: 20130627
  Serious: Yes (Life-Threatening, Hospitalization, Other)
  Sender: FDA-Public Use
  Company Number: US-ASTRAZENECA-2012SE75911

PATIENT
  Age: 52 Year
  Sex: Female
  Weight: 81.6 kg

DRUGS (1)
  1. SEROQUEL [Suspect]
     Indication: BIPOLAR DISORDER
     Route: 048
     Dates: start: 2006

REACTIONS (7)
  - Overdose [Recovered/Resolved]
  - Apparent death [Unknown]
  - Suicidal behaviour [Unknown]
  - Glucose tolerance impaired [Unknown]
  - Hypertension [Unknown]
  - Blood cholesterol increased [Unknown]
  - Drug dose omission [Unknown]
